FAERS Safety Report 4887438-3 (Version None)
Quarter: 2006Q1

REPORT INFORMATION
  Report Type: 
  Country: None (occurrence: None)
  Receive Date: 20060118
  Receipt Date: 20060104
  Transmission Date: 20060701
  Serious: Yes (Hospitalization)
  Sender: FDA-Public Use
  Company Number: 220866

PATIENT
  Age: 40 Year
  Sex: Female

DRUGS (3)
  1. MABTHERA (RITUXIMAB) CONC FOR SOLUTION FOR INFUSION [Suspect]
     Indication: RHEUMATOID ARTHRITIS
  2. METHOTREXATE [Concomitant]
  3. CORTICOIDS (CORTICOSTEROID NOS) [Concomitant]

REACTIONS (3)
  - CYTOMEGALOVIRUS VIRAEMIA [None]
  - HEPATIC ENZYME INCREASED [None]
  - SEPSIS [None]
